FAERS Safety Report 7054075-4 (Version None)
Quarter: 2010Q4

REPORT INFORMATION
  Report Type: 
  Country: None (occurrence: None)
  Receive Date: 20101020
  Receipt Date: 20101007
  Transmission Date: 20110411
  Serious: Yes (Other)
  Sender: FDA-Public Use
  Company Number: US-BAYER-200923785NA

PATIENT
  Age: 46 Year
  Sex: Male
  Weight: 72 kg

DRUGS (22)
  1. MAGNEVIST [Suspect]
     Indication: NUCLEAR MAGNETIC RESONANCE IMAGING BRAIN
     Dosage: AS USED: 15 ML
     Dates: start: 20040427, end: 20040427
  2. MAGNEVIST [Suspect]
     Dosage: AS USED: 15 ML
     Dates: start: 20040611, end: 20040611
  3. MAGNEVIST [Suspect]
     Dosage: AS USED: 20 ML
     Dates: start: 20041011, end: 20041011
  4. OMNISCAN [Suspect]
     Indication: NUCLEAR MAGNETIC RESONANCE IMAGING
  5. OPTIMARK [Suspect]
     Indication: NUCLEAR MAGNETIC RESONANCE IMAGING
  6. MULTIHANCE [Suspect]
     Indication: NUCLEAR MAGNETIC RESONANCE IMAGING
  7. PROHANCE [Suspect]
     Indication: NUCLEAR MAGNETIC RESONANCE IMAGING
  8. OPTIRAY 350 [Concomitant]
     Dates: start: 20030110, end: 20030110
  9. OPTIRAY 350 [Concomitant]
     Dosage: AS USED: 50 ML
     Dates: start: 20040525, end: 20040525
  10. OPTIRAY 350 [Concomitant]
     Dates: start: 20040922, end: 20040922
  11. OPTIRAY 350 [Concomitant]
     Dates: start: 20050323, end: 20050323
  12. OPTIRAY 350 [Concomitant]
     Dates: start: 20060703, end: 20060703
  13. EPOETIN ALPHA [Concomitant]
     Indication: ANAEMIA
     Dosage: 10,000 UNITS Q HD
     Dates: start: 20030528
  14. NAPROXEN [Concomitant]
     Dosage: TOTAL DAILY DOSE: 500 MG
     Dates: start: 20030211
  15. MUPIROCIN [Concomitant]
     Dosage: ONE APPLICATION DAILY
     Dates: start: 20030108
  16. VENOFER [Concomitant]
     Dosage: 200 MG PRN
     Dates: start: 20031215
  17. AMLODIPINE [Concomitant]
     Dosage: 5  MG QOD/ MWF
     Dates: start: 20030219
  18. HECTORAL [Concomitant]
     Dosage: TOTAL DAILY DOSE: 2.5 ?G
     Dates: start: 20021002
  19. MEGACE [Concomitant]
  20. ASPIRIN [Concomitant]
     Indication: PERIPHERAL ARTERIAL OCCLUSIVE DISEASE
     Dosage: TOTAL DAILY DOSE: 81 MG
  21. FENTANYL-75 [Concomitant]
     Dosage: 75 MG
  22. RENAGEL [Concomitant]
     Indication: HYPERPHOSPHATAEMIA

REACTIONS (23)
  - ARTHRALGIA [None]
  - ARTHROPATHY [None]
  - ASTHENIA [None]
  - BONE PAIN [None]
  - DEFORMITY [None]
  - ESCHAR [None]
  - EXTREMITY CONTRACTURE [None]
  - GENERAL PHYSICAL HEALTH DETERIORATION [None]
  - HYPOAESTHESIA [None]
  - MOBILITY DECREASED [None]
  - NEPHROGENIC SYSTEMIC FIBROSIS [None]
  - OEDEMA PERIPHERAL [None]
  - PAIN [None]
  - PAIN IN EXTREMITY [None]
  - PARAESTHESIA [None]
  - PERIPHERAL COLDNESS [None]
  - SCAR [None]
  - SKIN EXFOLIATION [None]
  - SKIN FISSURES [None]
  - SKIN HYPERTROPHY [None]
  - SKIN INDURATION [None]
  - SKIN LESION [None]
  - SKIN ULCER [None]
